FAERS Safety Report 7037843-4 (Version None)
Quarter: 2010Q4

REPORT INFORMATION
  Report Type: 
  Country: None (occurrence: None)
  Receive Date: 20101011
  Receipt Date: 20101005
  Transmission Date: 20110411
  Serious: Yes (Other)
  Sender: FDA-Public Use
  Company Number: FR-ROXANE LABORATORIES, INC.-2010-RO-01314RO

PATIENT
  Age: 37 Year
  Sex: Male

DRUGS (7)
  1. METHADONE [Suspect]
     Indication: DRUG DEPENDENCE
     Dosage: 50 MG
     Dates: start: 20010101
  2. METHADONE [Suspect]
     Dosage: 40 MG
  3. DIAZEPAM [Suspect]
  4. DULOXETINE [Suspect]
     Indication: DEPRESSION
     Dosage: 60 MG
     Dates: start: 20090301
  5. CYAMEMAZINE [Suspect]
  6. BIPERIDENE [Suspect]
  7. ALIMEMAZINE [Suspect]

REACTIONS (3)
  - DEPRESSION [None]
  - DRUG INTERACTION [None]
  - DRUG TOXICITY [None]
